FAERS Safety Report 6088883-3 (Version None)
Quarter: 2009Q1

REPORT INFORMATION
  Report Type: 
  Country: None (occurrence: None)
  Receive Date: 20090224
  Receipt Date: 20090213
  Transmission Date: 20090719
  Serious: Yes (Hospitalization, Other)
  Sender: FDA-Public Use
  Company Number: IT-AMGEN-QUU333580

PATIENT
  Sex: Male

DRUGS (8)
  1. ARANESP [Suspect]
     Indication: DIALYSIS
     Route: 042
     Dates: start: 20060101
  2. OMEPRAZOLE [Concomitant]
  3. AMIODARONE [Concomitant]
  4. DIGOSIN [Concomitant]
  5. CARVEDILOL [Concomitant]
  6. REPAGLINIDE [Concomitant]
  7. ASPIRIN [Concomitant]
  8. NITROGLICERINA [Concomitant]

REACTIONS (2)
  - ANAEMIA [None]
  - RENAL CANCER RECURRENT [None]
